FAERS Safety Report 4918308-X (Version None)
Quarter: 2006Q1

REPORT INFORMATION
  Report Type: 
  Country: None (occurrence: None)
  Receive Date: 20060217
  Receipt Date: 20060217
  Transmission Date: 20060701
  Serious: Yes (Hospitalization, Other)
  Sender: FDA-Public Use
  Company Number: None

PATIENT
  Age: 77 Year
  Sex: Female

DRUGS (1)
  1. FLUOROURACIL [Suspect]
     Indication: RECTAL CANCER
     Dosage: 350 MG/DAY CONTINUOUS INFUSION
     Dates: start: 20060112, end: 20060124

REACTIONS (10)
  - ABDOMINAL DISCOMFORT [None]
  - ANAEMIA [None]
  - ASTHENIA [None]
  - DIARRHOEA [None]
  - DYSPHAGIA [None]
  - FATIGUE [None]
  - HAEMATOCHEZIA [None]
  - MUCOSAL INFLAMMATION [None]
  - MUSCLE SPASMS [None]
  - PHARMACEUTICAL PRODUCT COMPLAINT [None]
